FAERS Safety Report 8923290 (Version 2)
Quarter: 2012Q4

REPORT INFORMATION
  Report Type: Spontaneous
  Country: CN (occurrence: None)
  Receive Date: 20121115
  Receipt Date: 20121130
  Transmission Date: 20130627
  Serious: Yes (Death, Hospitalization)
  Sender: FDA-Public Use
  Company Number: DSA_60851_2012

PATIENT
  Age: 87 Year
  Sex: Male

DRUGS (7)
  1. CARDIZEM [Suspect]
     Indication: HYPERTENSION
     Route: 048
     Dates: end: 20121022
  2. LIVALO [Suspect]
     Indication: HYPERLIPIDAEMIA
     Dosage: (2 mg oral)
     Dates: start: 20120912, end: 20121005
  3. CONCOR [Suspect]
     Indication: HYPERTENSION
     Route: 048
     Dates: start: 20120912, end: 20121022
  4. HARNAL [Suspect]
     Indication: BENIGN PROSTATIC HYPERPLASIA
     Route: 048
     Dates: start: 20120912, end: 20121022
  5. WARFARIN (WARFARIN) [Suspect]
     Indication: ISCHAEMIC STROKE
     Dosage: (DF)
     Route: 048
  6. HUMULIN [Suspect]
     Indication: TYPE 2 DIABETES MELLITUS
     Route: 058
     Dates: end: 20121022
  7. HUMULIN [Suspect]
     Indication: TYPE 2 DIABETES MELLITUS
     Route: 058
     Dates: end: 20121022

REACTIONS (10)
  - Stevens-Johnson syndrome [None]
  - Loss of consciousness [None]
  - Hypoglycaemia [None]
  - Staphylococcal skin infection [None]
  - Diabetes mellitus inadequate control [None]
  - Diabetes mellitus [None]
  - Rhabdomyolysis [None]
  - Pulmonary oedema [None]
  - Respiratory failure [None]
  - Refusal of treatment by relative [None]
